FAERS Safety Report 24832375 (Version 3)
Quarter: 2025Q1

REPORT INFORMATION
  Report Type: Spontaneous
  Country: BE (occurrence: BE)
  Receive Date: 20250110
  Receipt Date: 20250131
  Transmission Date: 20250408
  Serious: Yes (Death, Life-Threatening, Hospitalization)
  Sender: PFIZER
  Company Number: BE-MLMSERVICE-20250101-PI322114-00232-1

PATIENT
  Age: 61 Year
  Sex: Male

DRUGS (7)
  1. METHYLPREDNISOLONE SODIUM SUCCINATE [Suspect]
     Active Substance: METHYLPREDNISOLONE SODIUM SUCCINATE
     Indication: Immunosuppressant drug therapy
     Dosage: 4 MG, 1X/DAY
     Dates: start: 2009
  2. METHYLPREDNISOLONE SODIUM SUCCINATE [Suspect]
     Active Substance: METHYLPREDNISOLONE SODIUM SUCCINATE
     Indication: Renal transplant
  3. MYCOPHENOLATE MOFETIL [Suspect]
     Active Substance: MYCOPHENOLATE MOFETIL
     Indication: Immunosuppressant drug therapy
     Dosage: 200 MG, 2X/DAY
     Dates: start: 2009
  4. MYCOPHENOLATE MOFETIL [Suspect]
     Active Substance: MYCOPHENOLATE MOFETIL
     Indication: Renal transplant
  5. CYCLOSPORINE [Suspect]
     Active Substance: CYCLOSPORINE
     Indication: Immunosuppressant drug therapy
     Dosage: 100 MG, 1X/DAY
     Dates: start: 2009
  6. CYCLOSPORINE [Suspect]
     Active Substance: CYCLOSPORINE
     Indication: Renal transplant
  7. GLIQUIDONE [Concomitant]
     Active Substance: GLIQUIDONE
     Indication: Type 2 diabetes mellitus
     Dosage: 30 MG, 1X/DAY

REACTIONS (8)
  - Cardiac arrest [Fatal]
  - Septic shock [Fatal]
  - Respiratory failure [Unknown]
  - Pulmonary nocardiosis [Recovered/Resolved]
  - Metabolic acidosis [Unknown]
  - Hyperkalaemia [Unknown]
  - Acute kidney injury [Unknown]
  - Hyponatraemia [Unknown]
